FAERS Safety Report 9618981 (Version 3)
Quarter: 2014Q1

REPORT INFORMATION
  Report Type: Spontaneous
  Country: FR (occurrence: FR)
  Receive Date: 20131014
  Receipt Date: 20140321
  Transmission Date: 20141002
  Serious: Yes (Disabling)
  Sender: FDA-Public Use
  Company Number: FR-IPSEN BIOPHARMACEUTICALS, INC.-2013-2478

PATIENT
  Age: 51 Year
  Sex: Female

DRUGS (1)
  1. DYSPORT [Suspect]
     Indication: TORTICOLLIS
     Dosage: 500 UNITS
     Route: 030
     Dates: start: 20130419, end: 20130419

REACTIONS (5)
  - Muscular weakness [Recovered/Resolved]
  - Dysphagia [Recovered/Resolved]
  - Muscular weakness [Recovered/Resolved]
  - Neck pain [Recovered/Resolved]
  - Wrong technique in drug usage process [Unknown]
